FAERS Safety Report 7833419-7 (Version None)
Quarter: 2011Q4

REPORT INFORMATION
  Report Type: 
  Country: None (occurrence: None)
  Receive Date: 20111024
  Receipt Date: 20111010
  Transmission Date: 20120403
  Serious: Yes (Hospitalization, Other)
  Sender: FDA-Public Use
  Company Number: DE-MYLANLABS-2011S1021006

PATIENT
  Age: 0 Year
  Sex: Female
  Weight: 3.3 kg

DRUGS (4)
  1. LAMOTRIGINE [Suspect]
     Dosage: 200 [MG/D ]/ 2 X 100 MG/D
     Route: 063
     Dates: start: 20110127, end: 20110216
  2. VALPROIC ACID [Suspect]
     Route: 064
  3. VALPROIC ACID [Suspect]
     Dosage: 600 [MG/D ]/ 2 X 300 MG/D
     Route: 063
     Dates: start: 20110127, end: 20110216
  4. LAMOTRIGINE [Suspect]
     Route: 064

REACTIONS (6)
  - MATERNAL EXPOSURE DURING PREGNANCY [None]
  - POOR SUCKING REFLEX [None]
  - SOMNOLENCE [None]
  - EXPOSURE DURING BREAST FEEDING [None]
  - TREMOR [None]
  - HYPOGLYCAEMIA [None]
